FAERS Safety Report 17180997 (Version 1)
Quarter: 2019Q4

REPORT INFORMATION
  Report Type: Spontaneous
  Country: US (occurrence: US)
  Receive Date: 20191220
  Receipt Date: 20191220
  Transmission Date: 20200122
  Serious: No
  Sender: FDA-Public Use
  Company Number: US-LUPIN PHARMACEUTICALS INC.-2018-08171

PATIENT
  Sex: Female
  Weight: 74.83 kg

DRUGS (3)
  1. CELECOXIB CAPSULES 200 MG [Suspect]
     Active Substance: CELECOXIB
     Indication: RHEUMATOID ARTHRITIS
     Dosage: UNK
     Route: 048
  2. CELECOXIB CAPSULES 200 MG [Suspect]
     Active Substance: CELECOXIB
     Dosage: 200 MG, BID SECOND BATCH
     Route: 048
     Dates: start: 20181114
  3. CELECOXIB CAPSULES 200 MG [Suspect]
     Active Substance: CELECOXIB
     Dosage: 200 MG, BID NEW BATCH
     Route: 048

REACTIONS (3)
  - Cough [Not Recovered/Not Resolved]
  - Dysphagia [Not Recovered/Not Resolved]
  - Gastrooesophageal reflux disease [Not Recovered/Not Resolved]
